FAERS Safety Report 5982148-3 (Version None)
Quarter: 2008Q4

REPORT INFORMATION
  Report Type: 
  Country: None (occurrence: None)
  Receive Date: 20081203
  Receipt Date: 20081121
  Transmission Date: 20090506
  Serious: Yes (Other)
  Sender: FDA-Public Use
  Company Number: TRP_05984_2008

PATIENT
  Sex: Female

DRUGS (3)
  1. RIBASPHERE [Suspect]
     Indication: HEPATITIS C VIRUS TEST
     Dosage: (1200 MG)
     Dates: start: 20070928
  2. PEGASYS [Suspect]
     Indication: HEPATITIS C VIRUS TEST
     Dosage: (180 MCG)
     Dates: start: 20070928
  3. PROCRIT [Suspect]
     Indication: HAEMOGLOBIN ABNORMAL

REACTIONS (9)
  - DECREASED APPETITE [None]
  - DIABETES MELLITUS INADEQUATE CONTROL [None]
  - FATIGUE [None]
  - HAEMOGLOBIN ABNORMAL [None]
  - HYPERTENSION [None]
  - LARYNGITIS [None]
  - LETHARGY [None]
  - PAIN [None]
  - VISION BLURRED [None]
